FAERS Safety Report 8454823-2 (Version None)
Quarter: 2012Q2

REPORT INFORMATION
  Report Type: 
  Country: None (occurrence: None)
  Receive Date: 20120621
  Receipt Date: 20120612
  Transmission Date: 20120825
  Serious: Yes (Hospitalization)
  Sender: FDA-Public Use
  Company Number: US-BAYER-201037975NA

PATIENT
  Age: 47 Year
  Sex: Female
  Weight: 92.971 kg

DRUGS (5)
  1. MELATONIN [Concomitant]
     Dosage: 3 MG, UNK
     Dates: start: 20061103
  2. VALTREX [Concomitant]
  3. AUGMENTIN '125' [Concomitant]
  4. MULTI-VITAMIN [Concomitant]
  5. YAZ [Suspect]
     Indication: MENOPAUSAL SYMPTOMS
     Dosage: UNK
     Dates: start: 20061105, end: 20061215

REACTIONS (3)
  - DEEP VEIN THROMBOSIS [None]
  - PAIN [None]
  - PAIN IN EXTREMITY [None]
